FAERS Safety Report 25181044 (Version 1)
Quarter: 2025Q2

REPORT INFORMATION
  Report Type: Report from Study
  Country: CA (occurrence: CA)
  Receive Date: 20250410
  Receipt Date: 20250410
  Transmission Date: 20250716
  Serious: Yes (Other)
  Sender: ABBVIE
  Company Number: CA-ABBVIE-6211757

PATIENT
  Age: 42 Year
  Sex: Female

DRUGS (1)
  1. HUMIRA [Suspect]
     Active Substance: ADALIMUMAB
     Indication: Crohn^s disease
     Dosage: DOSE STRENGTH:  40MG/0.4ML
     Route: 058

REACTIONS (4)
  - Intestinal resection [Unknown]
  - Crohn^s disease [Unknown]
  - Drug ineffective [Unknown]
  - Hypersensitivity [Unknown]
